FAERS Safety Report 7384114-2 (Version None)
Quarter: 2011Q1

REPORT INFORMATION
  Report Type: 
  Country: None (occurrence: None)
  Receive Date: 20110330
  Receipt Date: 20110224
  Transmission Date: 20110831
  Serious: Yes (Other)
  Sender: FDA-Public Use
  Company Number: A0915297A

PATIENT
  Age: 91 Year
  Sex: Female

DRUGS (5)
  1. COMBIVENT [Concomitant]
  2. IBUPROFEN [Concomitant]
  3. ALBUTEROL [Concomitant]
  4. ADVAIR DISKUS 100/50 [Suspect]
     Indication: ASTHMA
     Dosage: 1PUFF TWICE PER DAY
     Route: 055
     Dates: start: 20110101
  5. SYSTANE [Concomitant]

REACTIONS (5)
  - PRODUCT QUALITY ISSUE [None]
  - INCORRECT DOSE ADMINISTERED BY DEVICE [None]
  - CHEST DISCOMFORT [None]
  - DRUG INEFFECTIVE [None]
  - DRUG ADMINISTRATION ERROR [None]
